FAERS Safety Report 24700587 (Version 1)
Quarter: 2024Q4

REPORT INFORMATION
  Report Type: Spontaneous
  Country: US (occurrence: US)
  Receive Date: 20241205
  Receipt Date: 20241205
  Transmission Date: 20250115
  Serious: Yes (Hospitalization, Other)
  Sender: HIKMA
  Company Number: US-HIKMA PHARMACEUTICALS USA INC.-US-H14001-24-11330

PATIENT
  Sex: Female

DRUGS (1)
  1. PREDNISONE [Suspect]
     Active Substance: PREDNISONE
     Indication: Urticaria
     Dosage: UNKNOWN
     Route: 065

REACTIONS (6)
  - Cushingoid [Unknown]
  - Swelling [Unknown]
  - Weight increased [Unknown]
  - Diabetes mellitus [Unknown]
  - Hypertension [Unknown]
  - Drug ineffective [Unknown]
